FAERS Safety Report 5474637-5 (Version None)
Quarter: 2007Q3

REPORT INFORMATION
  Report Type: 
  Country: None (occurrence: None)
  Receive Date: 20070831
  Receipt Date: 20070601
  Transmission Date: 20080115
  Serious: Yes (Life-Threatening, Hospitalization)
  Sender: FDA-Public Use
  Company Number: 261179

PATIENT
  Age: 55 Year
  Sex: Male
  Weight: 86.2 kg

DRUGS (8)
  1. NOVOLIN 70/30 [Suspect]
     Indication: INSULIN-REQUIRING TYPE II DIABETES MELLITUS
     Dosage: 20 IU, BID, SUBCUTANEOUS
     Route: 058
     Dates: start: 20030101
  2. GLIMEPIRIDE [Concomitant]
  3. DIOVAN [Concomitant]
  4. COREG [Concomitant]
  5. METFORMIN (METFORMIN HYDROCHLORIDE) [Concomitant]
  6. LISINOPRIL (LISINOPRIL DIHYDRATE) [Concomitant]
  7. STATIN (NYSTATIN) [Concomitant]
  8. ACTOS [Concomitant]

REACTIONS (1)
  - HYPOGLYCAEMIA [None]
